FAERS Safety Report 4875224-X (Version None)
Quarter: 2006Q1

REPORT INFORMATION
  Report Type: 
  Country: None (occurrence: None)
  Receive Date: 20060109
  Receipt Date: 20050429
  Transmission Date: 20060701
  Serious: Yes (Hospitalization)
  Sender: FDA-Public Use
  Company Number: US-MERCK-0505USA00121

PATIENT
  Age: 66 Year
  Sex: Female
  Weight: 91 kg

DRUGS (5)
  1. VIOXX [Suspect]
     Indication: OSTEOARTHRITIS
     Route: 048
     Dates: start: 19990805, end: 20011211
  2. VIOXX [Suspect]
     Route: 048
     Dates: start: 20040601, end: 20040801
  3. VIOXX [Suspect]
     Indication: PAIN
     Route: 048
     Dates: start: 19990805, end: 20011211
  4. VIOXX [Suspect]
     Route: 048
     Dates: start: 20040601, end: 20040801
  5. TYLENOL [Concomitant]
     Route: 065

REACTIONS (11)
  - ACUTE MYOCARDIAL INFARCTION [None]
  - ADVERSE EVENT [None]
  - ANGINA UNSTABLE [None]
  - ANXIETY [None]
  - BREAST CANCER [None]
  - CARDIAC DISORDER [None]
  - DEPRESSION [None]
  - DYSPNOEA [None]
  - LYMPHOEDEMA [None]
  - OEDEMA [None]
  - RECTAL HAEMORRHAGE [None]
